FAERS Safety Report 7059440-7 (Version None)
Quarter: 2010Q4

REPORT INFORMATION
  Report Type: 
  Country: None (occurrence: None)
  Receive Date: 20101025
  Receipt Date: 20101015
  Transmission Date: 20110411
  Serious: Yes (Congenital Anomaly)
  Sender: FDA-Public Use
  Company Number: GB-JNJFOC-20101005667

PATIENT

DRUGS (14)
  1. PARACETAMOL [Suspect]
     Route: 064
  2. PARACETAMOL [Suspect]
     Indication: DRUG EXPOSURE DURING PREGNANCY
     Route: 064
  3. ALENDRONIC ACID [Suspect]
     Indication: DRUG EXPOSURE DURING PREGNANCY
  4. AZATHIOPRINE [Suspect]
     Indication: DRUG EXPOSURE DURING PREGNANCY
     Route: 064
  5. CHLORHEXIDINE GLUCONATE [Suspect]
     Indication: DRUG EXPOSURE DURING PREGNANCY
     Route: 064
  6. HYDROXYCHLOROQUINE [Suspect]
     Indication: DRUG EXPOSURE DURING PREGNANCY
     Route: 064
  7. LACTULOSE [Suspect]
     Indication: DRUG EXPOSURE DURING PREGNANCY
     Route: 064
  8. METHYLPREDNISOLONE [Suspect]
     Indication: DRUG EXPOSURE DURING PREGNANCY
     Route: 064
  9. MUPIROCIN [Suspect]
     Indication: DRUG EXPOSURE DURING PREGNANCY
     Route: 064
  10. PREDNISOLONE [Suspect]
     Indication: DRUG EXPOSURE DURING PREGNANCY
     Route: 064
  11. SENNA [Suspect]
     Indication: DRUG EXPOSURE DURING PREGNANCY
     Route: 064
  12. SIMPLE LINCTUS [Suspect]
     Indication: DRUG EXPOSURE DURING PREGNANCY
     Route: 064
  13. ASPIRIN [Concomitant]
  14. FOLIC ACID [Concomitant]

REACTIONS (4)
  - CLEFT LIP AND PALATE [None]
  - DRUG EXPOSURE DURING PREGNANCY [None]
  - MATERNAL CONDITION AFFECTING FOETUS [None]
  - TERATOGENICITY [None]
